FAERS Safety Report 14121985 (Version 1)
Quarter: 2017Q4

REPORT INFORMATION
  Report Type: Spontaneous
  Country: CN (occurrence: CN)
  Receive Date: 20171024
  Receipt Date: 20171024
  Transmission Date: 20180321
  Serious: Yes (Hospitalization)
  Sender: FDA-Public Use
  Company Number: CN-ELI_LILLY_AND_COMPANY-CN201710004327

PATIENT
  Age: 65 Year
  Sex: Female
  Weight: 68 kg

DRUGS (3)
  1. HUMULIN R [Suspect]
     Active Substance: INSULIN HUMAN
     Dosage: 18 U, EACH EVENING
     Route: 058
     Dates: start: 2012, end: 20170628
  2. HUMULIN R [Suspect]
     Active Substance: INSULIN HUMAN
     Indication: DIABETES MELLITUS
     Dosage: 16 U, EACH MORNING
     Route: 058
     Dates: start: 2012, end: 20170628
  3. LANTUS [Concomitant]
     Active Substance: INSULIN GLARGINE
     Indication: TYPE 2 DIABETES MELLITUS
     Dosage: 15 U, UNKNOWN
     Route: 065

REACTIONS (2)
  - Ankle fracture [Unknown]
  - Ligament sprain [Unknown]
